FAERS Safety Report 9442639 (Version 1)
Quarter: 2013Q3

REPORT INFORMATION
  Report Type: Spontaneous
  Country: FR (occurrence: FR)
  Receive Date: 20130806
  Receipt Date: 20130806
  Transmission Date: 20140515
  Serious: Yes (Hospitalization)
  Sender: FDA-Public Use
  Company Number: FR-PFIZER INC-2013224626

PATIENT
  Age: 80 Year
  Sex: Female

DRUGS (7)
  1. ALPRESS [Suspect]
     Dosage: UNK
     Dates: end: 20130324
  2. VOLTARENE [Suspect]
     Indication: OSTEOARTHRITIS
     Dosage: 75 MG, 3X/DAY
     Route: 048
     Dates: end: 20130324
  3. METFORMIN [Suspect]
     Indication: DIABETES MELLITUS
     Dosage: 3 DF, 1X/DAY
     Route: 048
     Dates: end: 20130324
  4. KALEORID [Suspect]
     Dosage: 1000 MG, 1X/DAY
     Route: 048
     Dates: end: 20130324
  5. COAPROVEL [Suspect]
     Indication: HYPERTENSION
     Dosage: 1 DF, 1X/DAY
     Route: 048
     Dates: end: 20130324
  6. ATORVASTATIN [Concomitant]
     Dosage: UNK
     Dates: end: 20130324
  7. GLICLAZIDE [Concomitant]
     Dosage: UNK
     Route: 048
     Dates: end: 20130324

REACTIONS (5)
  - Renal failure acute [Recovering/Resolving]
  - Lactic acidosis [Recovered/Resolved]
  - Hyperkalaemia [Recovered/Resolved]
  - Diarrhoea [Unknown]
  - Dehydration [Unknown]
